FAERS Safety Report 10045387 (Version 2)
Quarter: 2014Q2

REPORT INFORMATION
  Report Type: Spontaneous
  Country: IL (occurrence: IL)
  Receive Date: 20140328
  Receipt Date: 20140512
  Transmission Date: 20141212
  Serious: Yes (Hospitalization, Other)
  Sender: FDA-Public Use
  Company Number: IL-009507513-1403ISR011103

PATIENT
  Sex: Male

DRUGS (1)
  1. DIPROSPAN [Suspect]

REACTIONS (1)
  - Anaphylactic shock [Recovered/Resolved]
